FAERS Safety Report 13277684 (Version 1)
Quarter: 2017Q1

REPORT INFORMATION
  Report Type: Spontaneous
  Country: US (occurrence: US)
  Receive Date: 20170228
  Receipt Date: 20170228
  Transmission Date: 20170428
  Serious: Yes (Hospitalization)
  Sender: FDA-Public Use
  Company Number: US-LPDUSPRD-20170177

PATIENT
  Age: 19 Year
  Sex: Male

DRUGS (2)
  1. PROMETHAZINE [Suspect]
     Active Substance: PROMETHAZINE\PROMETHAZINE HYDROCHLORIDE
     Dosage: DOSE UNKNOWN
     Route: 030
  2. LOPERAMIDE [Concomitant]
     Active Substance: LOPERAMIDE
     Dosage: DOSE UNKNOWN
     Route: 065

REACTIONS (4)
  - Urticaria [Recovering/Resolving]
  - Subcutaneous abscess [Recovered/Resolved]
  - Staphylococcal bacteraemia [Recovered/Resolved]
  - Pyomyositis [Recovered/Resolved]
